FAERS Safety Report 24381503 (Version 3)
Quarter: 2024Q4

REPORT INFORMATION
  Report Type: Spontaneous
  Country: PT (occurrence: PT)
  Receive Date: 20241001
  Receipt Date: 20241219
  Transmission Date: 20250115
  Serious: Yes (Other)
  Sender: AMGEN
  Company Number: PT-AMGEN-PRTSP2024181099

PATIENT
  Age: 85 Year
  Sex: Female

DRUGS (1)
  1. PROLIA [Suspect]
     Active Substance: DENOSUMAB
     Indication: Osteoporosis postmenopausal
     Dosage: 60 MILLIGRAM, Q6MO
     Route: 058

REACTIONS (3)
  - Osteonecrosis of jaw [Unknown]
  - Osteomyelitis [Unknown]
  - Tooth abscess [Unknown]

NARRATIVE: CASE EVENT DATE: 20240101
